FAERS Safety Report 5772015-2 (Version None)
Quarter: 2008Q2

REPORT INFORMATION
  Report Type: 
  Country: None (occurrence: None)
  Receive Date: 20080612
  Receipt Date: 20080612
  Transmission Date: 20081010
  Serious: Yes (Other)
  Sender: FDA-Public Use
  Company Number: None

PATIENT
  Age: 3 Year
  Sex: Male
  Weight: 15.8759 kg

DRUGS (1)
  1. SINGULAIR [Suspect]
     Indication: MULTIPLE ALLERGIES
     Dosage: 1 PACKET GRANULES 1XDAILY PO
     Route: 048
     Dates: start: 20080528, end: 20080607

REACTIONS (5)
  - ABNORMAL BEHAVIOUR [None]
  - ORAL INTAKE REDUCED [None]
  - PERSONALITY CHANGE [None]
  - SOCIAL AVOIDANT BEHAVIOUR [None]
  - SOMNOLENCE [None]
